FAERS Safety Report 5820460-9 (Version None)
Quarter: 2008Q3

REPORT INFORMATION
  Report Type: 
  Country: None (occurrence: None)
  Receive Date: 20080724
  Receipt Date: 20070810
  Transmission Date: 20090109
  Serious: No
  Sender: FDA-Public Use
  Company Number: A0667933A

PATIENT
  Sex: Male

DRUGS (2)
  1. AVANDIA [Suspect]
     Dosage: 8MG UNKNOWN
     Route: 048
  2. FORTAMET [Suspect]
     Indication: DRUG USE FOR UNKNOWN INDICATION

REACTIONS (1)
  - BLOOD GLUCOSE INCREASED [None]
